FAERS Safety Report 20491651 (Version 2)
Quarter: 2022Q4

REPORT INFORMATION
  Report Type: Spontaneous
  Country: CA (occurrence: CA)
  Receive Date: 20220218
  Receipt Date: 20221111
  Transmission Date: 20230113
  Serious: Yes (Hospitalization, Other)
  Sender: FDA-Public Use
  Company Number: None

PATIENT
  Sex: Female
  Weight: 3 kg

DRUGS (1)
  1. CITALOPRAM HYDROBROMIDE [Suspect]
     Active Substance: CITALOPRAM HYDROBROMIDE
     Indication: Anxiety
     Dosage: 30 MG, QD
     Route: 064

REACTIONS (6)
  - Foetal exposure during pregnancy [Unknown]
  - Musculoskeletal stiffness [Recovered/Resolved]
  - Neonatal behavioural syndrome [Recovered/Resolved]
  - Drug withdrawal syndrome neonatal [Recovered/Resolved]
  - Infantile apnoea [Recovered/Resolved]
  - Neonatal respiratory depression [Recovered/Resolved]

NARRATIVE: CASE EVENT DATE: 20210527
